FAERS Safety Report 6304391-6 (Version None)
Quarter: 2009Q3

REPORT INFORMATION
  Report Type: 
  Country: None (occurrence: None)
  Receive Date: 20090811
  Receipt Date: 20090730
  Transmission Date: 20100115
  Serious: No
  Sender: FDA-Public Use
  Company Number: PHEH2009US05215

PATIENT
  Sex: Female

DRUGS (6)
  1. TASIGNA [Suspect]
     Indication: CHROMOSOME ANALYSIS ABNORMAL
     Dosage: 400 MG, BID
     Dates: start: 20081120, end: 20081129
  2. TASIGNA [Suspect]
     Indication: CHRONIC MYELOID LEUKAEMIA
     Dosage: 200 MG, BID
     Dates: start: 20081130
  3. TASIGNA [Suspect]
     Dosage: 2X200 MG AM , 200 MG PM
     Dates: start: 20081218
  4. TASIGNA [Suspect]
     Dosage: 400-600 MG  QD ALTERNATING
     Route: 048
     Dates: start: 20090226, end: 20090511
  5. TASIGNA [Suspect]
     Dosage: 200 MG, BID
     Dates: start: 20090514
  6. BENICAR HCT [Concomitant]
     Indication: HYPERTENSION
     Dosage: UNK

REACTIONS (10)
  - ALOPECIA [None]
  - BREAST TENDERNESS [None]
  - DIPLOPIA [None]
  - ELECTROCARDIOGRAM QT PROLONGED [None]
  - OCULAR HYPERAEMIA [None]
  - PRURITUS [None]
  - RASH [None]
  - RASH FOLLICULAR [None]
  - RASH GENERALISED [None]
  - VISION BLURRED [None]
